FAERS Safety Report 9282667 (Version 2)
Quarter: 2013Q4

REPORT INFORMATION
  Report Type: Report from Study
  Country: CA (occurrence: CA)
  Receive Date: 20130510
  Receipt Date: 20131007
  Transmission Date: 20140711
  Serious: Yes (Hospitalization, Other)
  Sender: FDA-Public Use
  Company Number: CA-ROCHE-1214063

PATIENT
  Age: 45 Year
  Sex: Female
  Weight: 88.6 kg

DRUGS (10)
  1. ACTEMRA [Suspect]
     Indication: RHEUMATOID ARTHRITIS
     Route: 042
     Dates: start: 20130208
  2. ZOPICLONE [Concomitant]
  3. HYDROCHLOROTHIAZIDE [Concomitant]
  4. METHOTREXATE [Concomitant]
  5. LEUCOVORIN CALCIUM [Concomitant]
  6. COZAAR [Concomitant]
  7. VERAPAMIL [Concomitant]
  8. EFFEXOR [Concomitant]
  9. TRAMADOL [Concomitant]
  10. REMICADE [Concomitant]

REACTIONS (4)
  - Bacterial infection [Recovering/Resolving]
  - Gastrooesophageal reflux disease [Not Recovered/Not Resolved]
  - Liver disorder [Not Recovered/Not Resolved]
  - Weight decreased [Not Recovered/Not Resolved]
